FAERS Safety Report 15515182 (Version 2)
Quarter: 2018Q4

REPORT INFORMATION
  Report Type: Spontaneous
  Country: PL (occurrence: PL)
  Receive Date: 20181017
  Receipt Date: 20181114
  Transmission Date: 20190205
  Serious: Yes (Death, Hospitalization)
  Sender: FDA-Public Use
  Company Number: PL-TEVA-2018-PL-963200

PATIENT
  Age: 20 Year
  Sex: Female

DRUGS (11)
  1. D-PENICILLAMINE [Suspect]
     Active Substance: PENICILLAMINE
     Dosage: PENICILLAMINE WAS REDUCED TO 2 TABLETS, THEN GRADUALLY INCREASED TO 4 TABLETS
     Route: 065
  2. PROPRANOLOL [Concomitant]
     Active Substance: PROPRANOLOL HYDROCHLORIDE
     Route: 065
  3. QUETIAPINE. [Suspect]
     Active Substance: QUETIAPINE
     Dosage: INITIAL DOSE NOT STATED
     Route: 065
  4. AMISULPRIDE [Suspect]
     Active Substance: AMISULPRIDE
     Route: 065
  5. BIPERIDEN [Concomitant]
     Active Substance: BIPERIDEN
     Route: 065
  6. OLANZAPINE. [Suspect]
     Active Substance: OLANZAPINE
     Route: 065
  7. D-PENICILLAMINE [Suspect]
     Active Substance: PENICILLAMINE
     Route: 065
  8. D-PENICILLAMINE [Suspect]
     Active Substance: PENICILLAMINE
     Route: 065
  9. AMITRIPTYLINE [Concomitant]
     Active Substance: AMITRIPTYLINE
     Route: 065
  10. HALOPERIDOL. [Suspect]
     Active Substance: HALOPERIDOL
     Route: 065
  11. VITAMIN B6 [Concomitant]
     Active Substance: PYRIDOXINE HYDROCHLORIDE
     Route: 065

REACTIONS (14)
  - Dysarthria [Fatal]
  - Muscle rigidity [Fatal]
  - Musculoskeletal pain [Fatal]
  - Tremor [Fatal]
  - Flat affect [Fatal]
  - Gait disturbance [Fatal]
  - Oromandibular dystonia [Fatal]
  - Myalgia [Fatal]
  - Dysphagia [Fatal]
  - Salivary hypersecretion [Fatal]
  - Initial insomnia [Fatal]
  - Aphonia [Fatal]
  - Reduced facial expression [Fatal]
  - Dystonia [Fatal]
